FAERS Safety Report 8031524-6 (Version None)
Quarter: 2011Q4

REPORT INFORMATION
  Report Type: 
  Country: None (occurrence: None)
  Receive Date: 20111201
  Receipt Date: 20101006
  Transmission Date: 20120403
  Serious: Yes (Other)
  Sender: FDA-Public Use
  Company Number: 2010SP053551

PATIENT
  Sex: Male
  Weight: 97.5234 kg

DRUGS (2)
  1. NASONEX [Suspect]
     Indication: RHINITIS ALLERGIC
     Dosage: PO
     Route: 048
  2. NASONEX [Suspect]
     Indication: MULTIPLE ALLERGIES
     Dosage: PO
     Route: 048

REACTIONS (3)
  - EPISTAXIS [None]
  - INCORRECT ROUTE OF DRUG ADMINISTRATION [None]
  - NASAL SEPTUM PERFORATION [None]
